FAERS Safety Report 8845322 (Version 1)
Quarter: 2012Q4

REPORT INFORMATION
  Report Type: Spontaneous
  Country: US (occurrence: None)
  Receive Date: 20121015
  Receipt Date: 20121015
  Transmission Date: 20130627
  Serious: Yes (Other)
  Sender: FDA-Public Use
  Company Number: 7164827

PATIENT
  Age: 47 Year

DRUGS (3)
  1. LEVOTHYROX [Suspect]
     Indication: HYPOTHYROIDISM
     Dosage: 1 DF (1 DF, 1 in 1 D)
     Route: 048
  2. IXEL [Suspect]
     Dosage: 1 DF (1 DF, 1 in 1 D)
  3. PANADEINE CO [Suspect]
     Dosage: 3 DF (3 DF, 1 in 1 D)
     Route: 048

REACTIONS (1)
  - Sinus tachycardia [None]
